FAERS Safety Report 9447457 (Version 1)
Quarter: 2013Q3

REPORT INFORMATION
  Report Type: Spontaneous
  Country: US (occurrence: US)
  Receive Date: 20130808
  Receipt Date: 20130808
  Transmission Date: 20140515
  Serious: No
  Sender: FDA-Public Use
  Company Number: US-PFIZER INC-2013226589

PATIENT
  Age: 84 Year
  Sex: Male
  Weight: 68.03 kg

DRUGS (3)
  1. VIAGRA [Suspect]
     Indication: ERECTILE DYSFUNCTION
     Dosage: 50 MG, AS NEEDED
     Dates: start: 2013
  2. VIAGRA [Suspect]
     Dosage: 100 MG, AS NEEDED
  3. TAMSULOSIN [Concomitant]
     Indication: PROSTATIC DISORDER
     Dosage: 40 MG, 1X/DAY

REACTIONS (1)
  - Drug ineffective [Unknown]
